FAERS Safety Report 23389243 (Version 1)
Quarter: 2024Q1

REPORT INFORMATION
  Report Type: Spontaneous
  Country: US (occurrence: US)
  Receive Date: 20240110
  Receipt Date: 20240110
  Transmission Date: 20240409
  Serious: No
  Sender: FDA-Public Use
  Company Number: US-REGENERON PHARMACEUTICALS, INC.-2022-154134

PATIENT
  Sex: Male

DRUGS (3)
  1. EYLEA [Suspect]
     Active Substance: AFLIBERCEPT
     Indication: Diabetic retinopathy
     Dosage: UNK, EVERY 6-8 WEEKS, INTO BOTH EYES
     Dates: start: 202204, end: 202204
  2. EYLEA [Suspect]
     Active Substance: AFLIBERCEPT
     Dosage: UNK, EVERY 6-8 WEEKS, INTO BOTH EYES
     Dates: start: 202206, end: 202206
  3. EYLEA [Suspect]
     Active Substance: AFLIBERCEPT
     Dosage: UNK, EVERY 6-8 WEEKS, INTO BOTH EYES
     Dates: start: 20220928, end: 20220928

REACTIONS (5)
  - Superficial injury of eye [Unknown]
  - Blood glucose increased [Unknown]
  - Feeling jittery [Unknown]
  - Drug hypersensitivity [Unknown]
  - Eye pain [Unknown]

NARRATIVE: CASE EVENT DATE: 20220101
